FAERS Safety Report 20765171 (Version 2)
Quarter: 2022Q4

REPORT INFORMATION
  Report Type: Spontaneous
  Country: US (occurrence: US)
  Receive Date: 20220428
  Receipt Date: 20221116
  Transmission Date: 20230113
  Serious: No
  Sender: FDA-Public Use
  Company Number: US-PFIZER INC-202101513677

PATIENT
  Age: 66 Year
  Sex: Female

DRUGS (2)
  1. METHOTREXATE SODIUM [Suspect]
     Active Substance: METHOTREXATE SODIUM
     Dosage: UNK, WEEKLY
     Route: 058
     Dates: end: 201711
  2. METHOTREXATE SODIUM [Suspect]
     Active Substance: METHOTREXATE SODIUM
     Dosage: 20 MG WEEKLY
     Route: 048
     Dates: start: 20161206

REACTIONS (7)
  - Off label use [Unknown]
  - Blister [Unknown]
  - Flank pain [Unknown]
  - Myalgia [Unknown]
  - Insomnia [Unknown]
  - Dry eye [Unknown]
  - Back pain [Unknown]

NARRATIVE: CASE EVENT DATE: 20170101
